FAERS Safety Report 6579881-1 (Version None)
Quarter: 2010Q1

REPORT INFORMATION
  Report Type: 
  Country: None (occurrence: None)
  Receive Date: 20100212
  Receipt Date: 20100202
  Transmission Date: 20100710
  Serious: Yes (Hospitalization)
  Sender: FDA-Public Use
  Company Number: ES-JNJFOC-20100202279

PATIENT
  Sex: Female

DRUGS (12)
  1. DURAGESIC-100 [Suspect]
     Indication: BONE PAIN
     Route: 062
  2. EPORTIN ALFA [Suspect]
     Indication: DRUG USE FOR UNKNOWN INDICATION
     Route: 065
  3. VELCADE [Suspect]
     Indication: MULTIPLE MYELOMA
     Route: 042
  4. DEXAMETHASONE [Concomitant]
     Indication: MULTIPLE MYELOMA
  5. EMCONCOR [Concomitant]
     Indication: HYPERTENSION
  6. SINTROM [Concomitant]
     Indication: ATRIAL FIBRILLATION
  7. DIGOXIN [Concomitant]
     Indication: ATRIAL FIBRILLATION
  8. OMEPRAZOLE [Concomitant]
     Indication: GASTROINTESTINAL DISORDER THERAPY
  9. ZOMETA [Concomitant]
     Indication: DRUG USE FOR UNKNOWN INDICATION
  10. CALCIUM [Concomitant]
     Indication: DRUG USE FOR UNKNOWN INDICATION
  11. SEGURIL [Concomitant]
     Indication: DRUG USE FOR UNKNOWN INDICATION
  12. ZYLORIC [Concomitant]
     Indication: DRUG USE FOR UNKNOWN INDICATION

REACTIONS (4)
  - ILEUS PARALYTIC [None]
  - NAUSEA [None]
  - RENAL FAILURE [None]
  - VOMITING [None]
